FAERS Safety Report 8570552-9 (Version None)
Quarter: 2012Q3

REPORT INFORMATION
  Report Type: 
  Country: None (occurrence: None)
  Receive Date: 20120803
  Receipt Date: 20120723
  Transmission Date: 20120928
  Serious: No
  Sender: FDA-Public Use
  Company Number: US-ASTRAZENECA-2012SE52176

PATIENT
  Age: 15 Year
  Sex: Male

DRUGS (15)
  1. MULTI-VITAMIN [Concomitant]
  2. HUMALOG [Concomitant]
  3. PRILOSEC [Suspect]
     Route: 048
  4. CIALIS [Concomitant]
  5. LOVASTATIN [Concomitant]
  6. TOPROL-XL [Suspect]
     Route: 048
  7. NIACIN [Concomitant]
  8. FLEXERIL [Concomitant]
  9. OMEGA 3 FLAXSEED OIL [Concomitant]
  10. LISINOPRIL [Suspect]
     Route: 048
  11. AVODART [Concomitant]
  12. CYMBALTA [Concomitant]
  13. NORVASC [Concomitant]
  14. GLUCOPHAGE [Concomitant]
  15. METOZOLV ODT [Concomitant]

REACTIONS (2)
  - TYPE 2 DIABETES MELLITUS [None]
  - ESSENTIAL HYPERTENSION [None]
